FAERS Safety Report 26074429 (Version 2)
Quarter: 2025Q4

REPORT INFORMATION
  Report Type: Spontaneous
  Country: GB (occurrence: GB)
  Receive Date: 20251121
  Receipt Date: 20251124
  Transmission Date: 20260117
  Serious: Yes (Other)
  Sender: REGENERON
  Company Number: GB-SA-2025SA198466

PATIENT
  Age: 64 Year
  Sex: Female

DRUGS (1)
  1. PRALUENT [Suspect]
     Active Substance: ALIROCUMAB
     Indication: Hyperlipidaemia
     Dosage: 75MG QOW, SOLUTION FOR INJECTION
     Route: 058
     Dates: start: 20250711

REACTIONS (10)
  - Myocardial infarction [Unknown]
  - Dizziness [Recovered/Resolved]
  - Abdominal distension [Unknown]
  - Fatigue [Recovered/Resolved]
  - Pain [Unknown]
  - Arthralgia [Unknown]
  - Pain in extremity [Unknown]
  - Injection site reaction [Not Recovered/Not Resolved]
  - Diarrhoea [Recovered/Resolved]
  - Myalgia [Unknown]

NARRATIVE: CASE EVENT DATE: 20250101
